FAERS Safety Report 4517596-1 (Version None)
Quarter: 2004Q4

REPORT INFORMATION
  Report Type: 
  Country: None (occurrence: None)
  Receive Date: 20041104
  Receipt Date: 20040525
  Transmission Date: 20050328
  Serious: Yes (Other)
  Sender: FDA-Public Use
  Company Number: PHEH2004US05831

PATIENT
  Sex: Female

DRUGS (6)
  1. ESTRADERM(ESTRADIOL)TRANS-THERAPEUTIC-SYSTEM [Suspect]
     Indication: HORMONE REPLACEMENT THERAPY
  2. PREMPRO [Suspect]
  3. PREMARIN [Suspect]
  4. PROVERA [Suspect]
  5. MEDROXYPROGESTERONE ACETATE [Suspect]
  6. ESTROGENS (NO INGREDIENTS/SUBSTANCES) [Suspect]

REACTIONS (5)
  - BREAST CANCER [None]
  - BREAST OPERATION [None]
  - LYMPH NODE CANCER METASTATIC [None]
  - LYMPHOEDEMA [None]
  - MASTECTOMY [None]
